FAERS Safety Report 10013704 (Version 1)
Quarter: 2014Q1

REPORT INFORMATION
  Report Type: Spontaneous
  Country: US (occurrence: US)
  Receive Date: 20140316
  Receipt Date: 20140316
  Transmission Date: 20141002
  Serious: Yes (Other)
  Sender: FDA-Public Use
  Company Number: US-BAYER-2014-034612

PATIENT
  Age: 81 Year
  Sex: Female
  Weight: 82 kg

DRUGS (2)
  1. PHILLIPS^ MILK OF MAGNESIA LIQUID CHERRY [Suspect]
     Indication: CONSTIPATION
     Dosage: UNK UNK, QD
     Route: 048
     Dates: start: 2013
  2. PHILLIPS^ MILK OF MAGNESIA LIQUID MINT [Suspect]
     Indication: CONSTIPATION
     Dosage: UNK UNK, QD
     Route: 048
     Dates: start: 2013

REACTIONS (4)
  - Drug dependence [Not Recovered/Not Resolved]
  - Extra dose administered [None]
  - Diarrhoea [Recovered/Resolved]
  - Incorrect drug administration duration [None]
